FAERS Safety Report 15689701 (Version 2)
Quarter: 2018Q4

REPORT INFORMATION
  Report Type: Spontaneous
  Country: US (occurrence: US)
  Receive Date: 20181205
  Receipt Date: 20181217
  Transmission Date: 20190205
  Serious: Yes (Hospitalization)
  Sender: FDA-Public Use
  Company Number: US-NOVOPROD-590295

PATIENT
  Age: 84 Year
  Sex: Male
  Weight: 91 kg

DRUGS (34)
  1. NOVOLIN R [Suspect]
     Active Substance: INSULIN HUMAN
     Dosage: 70 U, QD
     Route: 065
     Dates: start: 20170425, end: 20170604
  2. NOVOLIN R [Suspect]
     Active Substance: INSULIN HUMAN
     Dosage: 60 U, QD
     Route: 065
     Dates: start: 20180214, end: 20180326
  3. LEVEMIR [Suspect]
     Active Substance: INSULIN DETEMIR
     Indication: TYPE 2 DIABETES MELLITUS
     Dosage: 32 U, QD
     Route: 065
     Dates: start: 201610, end: 20170313
  4. LEVEMIR [Suspect]
     Active Substance: INSULIN DETEMIR
     Dosage: 21 U, QD
     Route: 065
     Dates: start: 20171010, end: 20171120
  5. LEVEMIR [Suspect]
     Active Substance: INSULIN DETEMIR
     Dosage: 10 U, QD
     Route: 065
     Dates: start: 20180327, end: 20180510
  6. LEVEMIR [Suspect]
     Active Substance: INSULIN DETEMIR
     Dosage: 12 U, QD
     Route: 065
     Dates: start: 20180511
  7. NOVOLIN R [Suspect]
     Active Substance: INSULIN HUMAN
     Dosage: 74 U, QD
     Route: 065
     Dates: start: 20171010, end: 20171120
  8. NOVOLIN R [Suspect]
     Active Substance: INSULIN HUMAN
     Dosage: 84 U, QD
     Route: 065
     Dates: start: 20171121, end: 20180102
  9. ATORVASTATIN [Concomitant]
     Active Substance: ATORVASTATIN
     Dosage: 20 MG, QD
     Route: 065
     Dates: start: 20180302
  10. ACETAMINOPHEN. [Concomitant]
     Active Substance: ACETAMINOPHEN
     Indication: HYPOGLYCAEMIC UNCONSCIOUSNESS
     Dosage: 650 MG, PRN
     Route: 048
     Dates: start: 20180302
  11. LEVEMIR [Suspect]
     Active Substance: INSULIN DETEMIR
     Dosage: 27 U, QD
     Route: 065
     Dates: start: 20170425, end: 20170604
  12. LEVEMIR [Suspect]
     Active Substance: INSULIN DETEMIR
     Dosage: 22 U, QD
     Route: 065
     Dates: start: 20170829, end: 20171009
  13. NOVOLIN R [Suspect]
     Active Substance: INSULIN HUMAN
     Indication: TYPE 2 DIABETES MELLITUS
     Dosage: 60 U, QD
     Route: 065
     Dates: start: 201610, end: 20170227
  14. NOVOLIN R [Suspect]
     Active Substance: INSULIN HUMAN
     Dosage: 88 U, QD
     Route: 065
     Dates: start: 20170801, end: 20170811
  15. NOVOLIN R [Suspect]
     Active Substance: INSULIN HUMAN
     Dosage: 56 U, QD
     Route: 065
     Dates: start: 20180511
  16. LEVEMIR [Suspect]
     Active Substance: INSULIN DETEMIR
     Dosage: 24 U, QD
     Route: 065
     Dates: start: 20170605, end: 20170731
  17. LEVEMIR [Suspect]
     Active Substance: INSULIN DETEMIR
     Dosage: 24 U, QD
     Route: 065
     Dates: start: 20170815, end: 20170828
  18. LEVEMIR [Suspect]
     Active Substance: INSULIN DETEMIR
     Dosage: 17 U, QD
     Route: 065
     Dates: start: 20180103, end: 20180326
  19. NOVOLIN R [Suspect]
     Active Substance: INSULIN HUMAN
     Dosage: 54 U, QD
     Route: 065
     Dates: start: 20170314, end: 20170327
  20. NOVOLIN R [Suspect]
     Active Substance: INSULIN HUMAN
     Dosage: 67 U, QD
     Route: 065
     Dates: start: 20170718, end: 20170731
  21. NOVOLIN R [Suspect]
     Active Substance: INSULIN HUMAN
     Dosage: 76 U, QD
     Route: 065
     Dates: start: 20170829, end: 20171009
  22. LEVEMIR [Suspect]
     Active Substance: INSULIN DETEMIR
     Dosage: 22 U, QD
     Route: 065
     Dates: start: 20170801, end: 20170811
  23. NOVOLIN R [Suspect]
     Active Substance: INSULIN HUMAN
     Dosage: 57 U, QD
     Route: 065
     Dates: start: 20170228, end: 20170313
  24. NOVOLIN R [Suspect]
     Active Substance: INSULIN HUMAN
     Dosage: 66 U, QD
     Route: 065
     Dates: start: 20180103, end: 20180213
  25. FAMOTIDINE. [Concomitant]
     Active Substance: FAMOTIDINE
     Dosage: 20 MG, BID
     Route: 065
     Dates: start: 20180302
  26. LEVEMIR [Suspect]
     Active Substance: INSULIN DETEMIR
     Dosage: 26 U, QD
     Route: 065
     Dates: start: 20170328, end: 20170424
  27. LEVEMIR [Suspect]
     Active Substance: INSULIN DETEMIR
     Dosage: 19 U, QD
     Route: 065
     Dates: start: 20171121, end: 20180102
  28. NOVOLIN R [Suspect]
     Active Substance: INSULIN HUMAN
     Dosage: 72 U, QD
     Route: 065
     Dates: start: 20180327, end: 20180510
  29. LEVEMIR [Suspect]
     Active Substance: INSULIN DETEMIR
     Dosage: 30 U, QD
     Route: 065
     Dates: start: 20170314, end: 20170327
  30. NOVOLIN R [Suspect]
     Active Substance: INSULIN HUMAN
     Dosage: 68 U, QD
     Route: 065
     Dates: start: 20170328, end: 20170424
  31. NOVOLIN R [Suspect]
     Active Substance: INSULIN HUMAN
     Dosage: 66 U, QD
     Route: 065
     Dates: start: 20170605, end: 20170717
  32. NOVOLIN R [Suspect]
     Active Substance: INSULIN HUMAN
     Dosage: 32 U, QD
     Route: 065
     Dates: start: 20170815, end: 20170828
  33. ONDANSETRON [Concomitant]
     Active Substance: ONDANSETRON
     Dosage: 4 MG, PRN
     Route: 042
     Dates: start: 20180302
  34. GABAPENTIN. [Concomitant]
     Active Substance: GABAPENTIN
     Dosage: 300 MG, QD (BED TIME)
     Route: 065
     Dates: start: 20180302

REACTIONS (3)
  - Electrocardiogram abnormal [Unknown]
  - Hypoglycaemic unconsciousness [Recovered/Resolved]
  - Hypoglycaemia [Recovered/Resolved]

NARRATIVE: CASE EVENT DATE: 20180302
